FAERS Safety Report 13678644 (Version 1)
Quarter: 2017Q2

REPORT INFORMATION
  Report Type: Spontaneous
  Country: US (occurrence: US)
  Receive Date: 20170622
  Receipt Date: 20170622
  Transmission Date: 20170830
  Serious: No
  Sender: FDA-Public Use
  Company Number: US-SA-2016SA148292

PATIENT
  Age: 23 Year
  Sex: Male

DRUGS (2)
  1. CEREZYME [Suspect]
     Active Substance: IMIGLUCERASE
     Route: 042
  2. CERDELGA [Concomitant]
     Active Substance: ELIGLUSTAT

REACTIONS (1)
  - Arthritis [Not Recovered/Not Resolved]
